FAERS Safety Report 6128656-6 (Version None)
Quarter: 2009Q1

REPORT INFORMATION
  Report Type: 
  Country: None (occurrence: None)
  Receive Date: 20090323
  Receipt Date: 20090303
  Transmission Date: 20090719
  Serious: Yes (Other)
  Sender: FDA-Public Use
  Company Number: BR-PFIZER INC-2009179486

PATIENT

DRUGS (3)
  1. CHAMPIX [Suspect]
     Indication: SMOKING CESSATION THERAPY
     Dosage: UNK
     Route: 048
     Dates: start: 20090201
  2. LAMOTRIGINE [Concomitant]
     Dosage: 50 MG, UNK
  3. CITALOPRAM [Concomitant]
     Dosage: 20 MG, UNK

REACTIONS (2)
  - DIZZINESS [None]
  - ROAD TRAFFIC ACCIDENT [None]
